FAERS Safety Report 6634517-6 (Version None)
Quarter: 2010Q1

REPORT INFORMATION
  Report Type: 
  Country: None (occurrence: None)
  Receive Date: 20100315
  Receipt Date: 20100308
  Transmission Date: 20100710
  Serious: Yes (Hospitalization)
  Sender: FDA-Public Use
  Company Number: B0638137A

PATIENT
  Sex: Female

DRUGS (6)
  1. BETNEVAL [Suspect]
     Indication: PUSTULAR PSORIASIS
     Route: 050
  2. CORTANCYL [Suspect]
     Indication: PUSTULAR PSORIASIS
     Route: 048
     Dates: start: 20090628
  3. ENBREL [Suspect]
     Indication: PUSTULAR PSORIASIS
     Dosage: 50MG TWO TIMES PER WEEK
     Route: 058
     Dates: start: 20090729
  4. ATARAX [Concomitant]
     Indication: ANXIETY
     Route: 048
  5. OROCAL [Concomitant]
     Indication: CALCIUM DEFICIENCY
     Route: 048
  6. DIFFU K [Concomitant]
     Dosage: 600MG TWICE PER DAY
     Route: 048

REACTIONS (1)
  - HERPES ZOSTER [None]
